FAERS Safety Report 4805486-6 (Version None)
Quarter: 2005Q4

REPORT INFORMATION
  Report Type: 
  Country: None (occurrence: None)
  Receive Date: 20051018
  Receipt Date: 20050929
  Transmission Date: 20060501
  Serious: No
  Sender: FDA-Public Use
  Company Number: FR_050706807

PATIENT
  Age: 46 Year
  Sex: Female

DRUGS (7)
  1. ZYPREXA [Suspect]
     Indication: ANOREXIA
     Dosage: 5 MG DAY
     Dates: start: 20050616, end: 20050705
  2. LORAZEPAM [Concomitant]
  3. MIRTAZAPINE [Concomitant]
  4. ZOLPIDEM TARTRATE [Concomitant]
  5. DEBRIDAT (TRIMEBUTINE MALEATE) [Concomitant]
  6. MOTILIUM (DOMPERIDONE MALEATE) [Concomitant]
  7. POTASSIUM CHLORIDE [Concomitant]

REACTIONS (4)
  - ANAEMIA [None]
  - BONE MARROW FAILURE [None]
  - CONDITION AGGRAVATED [None]
  - PLATELET COUNT DECREASED [None]
